FAERS Safety Report 23252423 (Version 1)
Quarter: 2023Q4

REPORT INFORMATION
  Report Type: Spontaneous
  Country: US (occurrence: None)
  Receive Date: 20231201
  Receipt Date: 20231201
  Transmission Date: 20240110
  Serious: Yes (Other)
  Sender: FDA-Public Use
  Company Number: None

PATIENT
  Sex: Male

DRUGS (8)
  1. ADBRY [Suspect]
     Active Substance: TRALOKINUMAB-LDRM
     Indication: Dermatitis atopic
     Dosage: 150 MG/ML SUBCUTANEOUS?? RX1: INJECT 600MG UNDER THE SKIN (SUBCUTANEOUS INJECTION) (150MG X 4 ) ON D
     Route: 058
  2. ADBRY [Suspect]
     Active Substance: TRALOKINUMAB-LDRM
     Dosage: FREQUENCY : AS DIRECTED;?
     Route: 058
  3. DILANTIN [Concomitant]
     Active Substance: PHENYTOIN
  4. HYDROXYZINE HYDROCHLORIDE [Concomitant]
     Active Substance: HYDROXYZINE HYDROCHLORIDE
  5. KLONOPIN [Concomitant]
     Active Substance: CLONAZEPAM
  6. LAMICTAL [Concomitant]
     Active Substance: LAMOTRIGINE
  7. LISINOPRIL [Concomitant]
     Active Substance: LISINOPRIL
  8. OMEPRAZOLE [Concomitant]
     Active Substance: OMEPRAZOLE

REACTIONS (6)
  - Therapy interrupted [None]
  - Coronary arterial stent insertion [None]
  - Condition aggravated [None]
  - Sleep disorder [None]
  - Rash [None]
  - Discomfort [None]
